FAERS Safety Report 13776519 (Version 6)
Quarter: 2019Q1

REPORT INFORMATION
  Report Type: Report from Study
  Country: US (occurrence: US)
  Receive Date: 20170720
  Receipt Date: 20190207
  Transmission Date: 20190417
  Serious: Yes (Hospitalization, Other)
  Sender: FDA-Public Use
  Company Number: US-ACTELION-A-NJ2017-152645

PATIENT
  Age: 50 Year
  Sex: Female
  Weight: 85.26 kg

DRUGS (6)
  1. UPTRAVI [Suspect]
     Active Substance: SELEXIPAG
     Dosage: 400 MCG, BID
     Route: 048
  2. UPTRAVI [Suspect]
     Active Substance: SELEXIPAG
     Dosage: 1600 MCG, BID
     Route: 048
  3. ADCIRCA [Concomitant]
     Active Substance: TADALAFIL
  4. UPTRAVI [Suspect]
     Active Substance: SELEXIPAG
     Dosage: 1000 MCG, BID
     Route: 048
  5. UPTRAVI [Suspect]
     Active Substance: SELEXIPAG
     Indication: PULMONARY ARTERIAL HYPERTENSION
     Dosage: 1600 MCG, BID
     Route: 048
  6. LETAIRIS [Suspect]
     Active Substance: AMBRISENTAN
     Indication: PULMONARY ARTERIAL HYPERTENSION
     Dosage: 10 MG, QD
     Route: 065
     Dates: start: 20150210

REACTIONS (22)
  - Headache [Unknown]
  - Blood electrolytes decreased [Unknown]
  - Mobility decreased [Unknown]
  - Insomnia [Unknown]
  - Inflammation [Not Recovered/Not Resolved]
  - Oxygen saturation decreased [Unknown]
  - Dehydration [Unknown]
  - Memory impairment [Unknown]
  - Dizziness [Unknown]
  - Angina pectoris [Unknown]
  - Blister [Not Recovered/Not Resolved]
  - Fluid retention [Recovering/Resolving]
  - Swelling [Unknown]
  - Back pain [Unknown]
  - Muscle spasms [Unknown]
  - Cardiac flutter [Unknown]
  - Hypotension [Unknown]
  - Renal impairment [Unknown]
  - Peripheral swelling [Not Recovered/Not Resolved]
  - Unevaluable event [Unknown]
  - Diarrhoea [Unknown]
  - Product dose omission [Unknown]

NARRATIVE: CASE EVENT DATE: 201705
